FAERS Safety Report 25025580 (Version 1)
Quarter: 2025Q1

REPORT INFORMATION
  Report Type: Spontaneous
  Country: US (occurrence: US)
  Receive Date: 20250228
  Receipt Date: 20250228
  Transmission Date: 20250409
  Serious: No
  Sender: ELI LILLY AND COMPANY
  Company Number: US-ELI_LILLY_AND_COMPANY-US202502017054

PATIENT
  Age: 73 Year
  Sex: Female

DRUGS (2)
  1. ZEPBOUND [Suspect]
     Active Substance: TIRZEPATIDE
     Indication: Weight control
     Route: 065
     Dates: start: 202412
  2. CORTISONE [Suspect]
     Active Substance: CORTISONE
     Indication: Injection site rash
     Route: 065

REACTIONS (3)
  - Injection site erythema [Unknown]
  - Injection site swelling [Recovering/Resolving]
  - Injection site rash [Recovering/Resolving]
